FAERS Safety Report 16539402 (Version 1)
Quarter: 2019Q3

REPORT INFORMATION
  Report Type: Spontaneous
  Country: FR (occurrence: FR)
  Receive Date: 20190708
  Receipt Date: 20190708
  Transmission Date: 20191004
  Serious: Yes (Life-Threatening, Other)
  Sender: FDA-Public Use
  Company Number: FR-PFIZER INC-2019284390

PATIENT
  Age: 16 Year
  Sex: Male
  Weight: 47 kg

DRUGS (9)
  1. HYDROCORTISONE HYDROGEN SUCCINATE [Suspect]
     Active Substance: HYDROCORTISONE HEMISUCCINATE ANHYDROUS
     Indication: ACUTE LYMPHOCYTIC LEUKAEMIA
     Dosage: 15 MG, UNK (DAY 3, DAY 31)
     Route: 037
     Dates: start: 20190509
  2. CYCLOPHOSPHAMIDE. [Suspect]
     Active Substance: CYCLOPHOSPHAMIDE
     Indication: ACUTE LYMPHOCYTIC LEUKAEMIA
     Dosage: 1440 MG, UNK (DAY 1 AND DAY 29)
     Route: 042
     Dates: start: 20190507, end: 20190604
  3. METHOTREXATE SODIUM. [Suspect]
     Active Substance: METHOTREXATE SODIUM
     Indication: ACUTE LYMPHOCYTIC LEUKAEMIA
     Dosage: 15 MG, UNK (DAY 3, DAY 31)
     Route: 037
     Dates: start: 20190509
  4. CYTARABINE. [Suspect]
     Active Substance: CYTARABINE
     Indication: ACUTE LYMPHOCYTIC LEUKAEMIA
     Dosage: 110 MG, UNK (FROM DAY 3 TO DAY 6, FROM DAY 10 TO DAY 13, DAY 31)
     Route: 042
     Dates: start: 20190509
  5. MERCAPTOPURINE. [Suspect]
     Active Substance: MERCAPTOPURINE
     Indication: ACUTE LYMPHOCYTIC LEUKAEMIA
     Dosage: 100 MG, UNK (DAY 1, DAY 14 AND DAY 29)
     Route: 048
     Dates: start: 20190507, end: 201905
  6. ONCASPAR [Suspect]
     Active Substance: PEGASPARGASE
     Indication: ACUTE LYMPHOCYTIC LEUKAEMIA
     Dosage: 3600 IU, SINGLE
     Route: 042
     Dates: start: 20190521, end: 20190521
  7. VINCRISTINE SULFATE. [Suspect]
     Active Substance: VINCRISTINE SULFATE
     Indication: ACUTE LYMPHOCYTIC LEUKAEMIA
     Dosage: 2 MG, UNK (2 MG DAY 15 AND DAY 22)
     Route: 042
     Dates: start: 20190521
  8. CYTARABINE. [Suspect]
     Active Substance: CYTARABINE
     Dosage: 30 MG, UNK (110 MG DAY 3, DAY 31)
     Route: 037
     Dates: start: 20190509
  9. MERCAPTOPURINE. [Suspect]
     Active Substance: MERCAPTOPURINE
     Dosage: 700 MG, UNK
     Route: 048
     Dates: start: 201905

REACTIONS (2)
  - Shock [Recovering/Resolving]
  - Pancreatitis acute [Recovering/Resolving]

NARRATIVE: CASE EVENT DATE: 20190606
